FAERS Safety Report 10243272 (Version 1)
Quarter: 2014Q2

REPORT INFORMATION
  Report Type: Spontaneous
  Country: US (occurrence: None)
  Receive Date: 20140616
  Receipt Date: 20140616
  Transmission Date: 20141212
  Serious: No
  Sender: FDA-Public Use
  Company Number: None

PATIENT
  Age: 15 Year
  Sex: Female
  Weight: 63.96 kg

DRUGS (2)
  1. WELLBUTRIN SR 100 MG [Suspect]
     Dosage: 100 MG (1 PILL) QAM ORAL
     Route: 048
     Dates: start: 20140610, end: 20140611
  2. LATUDA [Concomitant]

REACTIONS (3)
  - Nausea [None]
  - Vomiting [None]
  - Abdominal discomfort [None]
